FAERS Safety Report 20097646 (Version 1)
Quarter: 2021Q4

REPORT INFORMATION
  Report Type: Spontaneous
  Country: IL (occurrence: IL)
  Receive Date: 20211122
  Receipt Date: 20211122
  Transmission Date: 20220303
  Serious: Yes (Other)
  Sender: FDA-Public Use
  Company Number: IL-PFIZER INC-202101546288

PATIENT
  Age: 7 Year
  Sex: Female

DRUGS (1)
  1. VORICONAZOLE [Suspect]
     Active Substance: VORICONAZOLE
     Dosage: UNK

REACTIONS (2)
  - B-cell type acute leukaemia [Unknown]
  - Aspergillus infection [Unknown]
